FAERS Safety Report 6222972-5 (Version None)
Quarter: 2009Q2

REPORT INFORMATION
  Report Type: 
  Country: None (occurrence: None)
  Receive Date: 20090611
  Receipt Date: 20090604
  Transmission Date: 20091009
  Serious: Yes (Disabling, Other)
  Sender: FDA-Public Use
  Company Number: NL-PFIZER INC-2009222204

PATIENT
  Age: 20 Year

DRUGS (2)
  1. CELEBREX [Suspect]
     Indication: RESTLESS LEGS SYNDROME
     Dosage: 100 MG, 4X/DAY
     Route: 048
     Dates: start: 20040617, end: 20040627
  2. SEROXAT ^SMITH KLINE BEECHAM^ [Suspect]
     Indication: FATIGUE
     Dosage: 20 MG, 3X/DAY
     Route: 048
     Dates: start: 20010427

REACTIONS (2)
  - RESTLESS LEGS SYNDROME [None]
  - VARICOSE VEIN [None]
